FAERS Safety Report 17150011 (Version 8)
Quarter: 2023Q1

REPORT INFORMATION
  Report Type: Report from Study
  Country: US (occurrence: None)
  Receive Date: 20191213
  Receipt Date: 20230306
  Transmission Date: 20230418
  Serious: Yes (Hospitalization, Other)
  Sender: FDA-Public Use
  Company Number: US-ROCHE-2152578

PATIENT
  Age: 45 Year
  Sex: Female
  Weight: 76 kg

DRUGS (82)
  1. ATEZOLIZUMAB [Suspect]
     Active Substance: ATEZOLIZUMAB
     Indication: Alveolar soft part sarcoma
     Dosage: PATIENTS RECEIVE ATEZOLIZUMAB IV OVER 60 MINUTES ON DAY 1. COURSES REPEAT EVERY 21 DAYS IN THE ABSEN
     Route: 041
     Dates: start: 20171211
  2. ATEZOLIZUMAB [Suspect]
     Active Substance: ATEZOLIZUMAB
     Route: 042
     Dates: start: 20180103
  3. ATEZOLIZUMAB [Suspect]
     Active Substance: ATEZOLIZUMAB
     Route: 042
     Dates: start: 20180124
  4. ATEZOLIZUMAB [Suspect]
     Active Substance: ATEZOLIZUMAB
     Route: 042
     Dates: start: 20180209
  5. ATEZOLIZUMAB [Suspect]
     Active Substance: ATEZOLIZUMAB
     Route: 042
     Dates: start: 20180305
  6. ATEZOLIZUMAB [Suspect]
     Active Substance: ATEZOLIZUMAB
     Route: 042
     Dates: start: 20180328
  7. ATEZOLIZUMAB [Suspect]
     Active Substance: ATEZOLIZUMAB
     Route: 042
     Dates: start: 20180418
  8. ATEZOLIZUMAB [Suspect]
     Active Substance: ATEZOLIZUMAB
     Route: 042
     Dates: start: 20180510
  9. ATEZOLIZUMAB [Suspect]
     Active Substance: ATEZOLIZUMAB
     Route: 042
     Dates: start: 20180529
  10. ATEZOLIZUMAB [Suspect]
     Active Substance: ATEZOLIZUMAB
     Route: 042
     Dates: start: 20180625
  11. ATEZOLIZUMAB [Suspect]
     Active Substance: ATEZOLIZUMAB
     Route: 042
     Dates: start: 20180717
  12. ATEZOLIZUMAB [Suspect]
     Active Substance: ATEZOLIZUMAB
     Route: 042
     Dates: start: 20180807
  13. ATEZOLIZUMAB [Suspect]
     Active Substance: ATEZOLIZUMAB
     Route: 042
     Dates: start: 20180828
  14. ATEZOLIZUMAB [Suspect]
     Active Substance: ATEZOLIZUMAB
     Route: 042
     Dates: start: 20181009
  15. ATEZOLIZUMAB [Suspect]
     Active Substance: ATEZOLIZUMAB
     Route: 042
     Dates: start: 20180918
  16. ATEZOLIZUMAB [Suspect]
     Active Substance: ATEZOLIZUMAB
     Route: 042
     Dates: start: 20181030
  17. ATEZOLIZUMAB [Suspect]
     Active Substance: ATEZOLIZUMAB
     Route: 042
     Dates: start: 20181129
  18. ATEZOLIZUMAB [Suspect]
     Active Substance: ATEZOLIZUMAB
     Route: 042
     Dates: start: 20180104
  19. ATEZOLIZUMAB [Suspect]
     Active Substance: ATEZOLIZUMAB
     Route: 042
     Dates: start: 20180124
  20. ATEZOLIZUMAB [Suspect]
     Active Substance: ATEZOLIZUMAB
     Route: 042
     Dates: start: 20190215
  21. ATEZOLIZUMAB [Suspect]
     Active Substance: ATEZOLIZUMAB
     Route: 042
     Dates: start: 20190215
  22. ATEZOLIZUMAB [Suspect]
     Active Substance: ATEZOLIZUMAB
     Route: 042
     Dates: start: 20190308
  23. ATEZOLIZUMAB [Suspect]
     Active Substance: ATEZOLIZUMAB
     Route: 042
     Dates: start: 20190308
  24. ATEZOLIZUMAB [Suspect]
     Active Substance: ATEZOLIZUMAB
     Route: 042
     Dates: start: 20190329
  25. ATEZOLIZUMAB [Suspect]
     Active Substance: ATEZOLIZUMAB
     Route: 042
     Dates: start: 20190530
  26. ATEZOLIZUMAB [Suspect]
     Active Substance: ATEZOLIZUMAB
     Route: 042
     Dates: start: 20190912
  27. ATEZOLIZUMAB [Suspect]
     Active Substance: ATEZOLIZUMAB
     Route: 042
     Dates: start: 20191204
  28. ATEZOLIZUMAB [Suspect]
     Active Substance: ATEZOLIZUMAB
     Route: 042
     Dates: start: 20200305
  29. ATEZOLIZUMAB [Suspect]
     Active Substance: ATEZOLIZUMAB
     Route: 042
     Dates: start: 20200416
  30. ATEZOLIZUMAB [Suspect]
     Active Substance: ATEZOLIZUMAB
     Route: 042
     Dates: start: 20200416
  31. ADVIL [Concomitant]
     Active Substance: IBUPROFEN
  32. AMBIEN [Concomitant]
     Active Substance: ZOLPIDEM TARTRATE
  33. AMITIZA [Concomitant]
     Active Substance: LUBIPROSTONE
  34. ATENOLOL [Concomitant]
     Active Substance: ATENOLOL
  35. CYMBALTA [Concomitant]
     Active Substance: DULOXETINE HYDROCHLORIDE
  36. GLUCOSAMINE [Concomitant]
     Active Substance: GLUCOSAMINE
  37. LYRICA [Concomitant]
     Active Substance: PREGABALIN
  38. OXYBUTYNIN [Concomitant]
     Active Substance: OXYBUTYNIN
  39. OXYCODONE [Concomitant]
     Active Substance: OXYCODONE
  40. OXYGEN [Concomitant]
     Active Substance: OXYGEN
  41. PROAIR HFA [Concomitant]
     Active Substance: ALBUTEROL SULFATE
  42. ACETAMINOPHEN [Concomitant]
     Active Substance: ACETAMINOPHEN
  43. ALBUTEROL [Concomitant]
     Active Substance: ALBUTEROL
     Indication: Wheezing
  44. FEXOFENADINE [Concomitant]
     Active Substance: FEXOFENADINE HYDROCHLORIDE
  45. LUBIPROSTONE [Concomitant]
     Active Substance: LUBIPROSTONE
  46. AZELASTINE [Concomitant]
     Active Substance: AZELASTINE
  47. ALPRAZOLAM [Concomitant]
     Active Substance: ALPRAZOLAM
  48. BETAMETHASONE [Concomitant]
     Active Substance: BETAMETHASONE
  49. BUDESONIDE\FORMOTEROL [Concomitant]
     Active Substance: BUDESONIDE\FORMOTEROL
  50. CHOLECALCIFEROL [Concomitant]
     Active Substance: CHOLECALCIFEROL
  51. CYCLOBENZAPRINE [Concomitant]
     Active Substance: CYCLOBENZAPRINE
  52. DOXEPIN [Concomitant]
     Active Substance: DOXEPIN
  53. DULOXETINE [Concomitant]
     Active Substance: DULOXETINE
  54. ESZOPICLONE [Concomitant]
     Active Substance: ESZOPICLONE
  55. FLUTICASONE [Concomitant]
     Active Substance: FLUTICASONE
  56. FORMOTEROL [Concomitant]
     Active Substance: FORMOTEROL
  57. GEMFIBROZIL [Concomitant]
     Active Substance: GEMFIBROZIL
  58. HYDROCORTISONE [Concomitant]
     Active Substance: HYDROCORTISONE
  59. IPRATROPIUM [Concomitant]
     Active Substance: IPRATROPIUM
  60. LORAZEPAM [Concomitant]
     Active Substance: LORAZEPAM
  61. LIDOCAINE [Concomitant]
     Active Substance: LIDOCAINE
  62. MOMETASONE [Concomitant]
     Active Substance: MOMETASONE
  63. MONTELUKAST [Concomitant]
     Active Substance: MONTELUKAST SODIUM
  64. METOPROLOL [Concomitant]
     Active Substance: METOPROLOL
  65. OLOPATADINE [Concomitant]
     Active Substance: OLOPATADINE
  66. PREGABALIN [Concomitant]
     Active Substance: PREGABALIN
  67. PILOCARPINE [Concomitant]
     Active Substance: PILOCARPINE
  68. RANITIDINE [Concomitant]
     Active Substance: RANITIDINE
  69. SENNOSIDES [Concomitant]
     Active Substance: SENNOSIDES
  70. SUNITINIB [Concomitant]
     Active Substance: SUNITINIB
  71. TRAZODONE [Concomitant]
     Active Substance: TRAZODONE HYDROCHLORIDE
  72. TORSEMIDE [Concomitant]
     Active Substance: TORSEMIDE
  73. CYTOXAN [Concomitant]
     Active Substance: CYCLOPHOSPHAMIDE
     Dates: start: 201501, end: 201708
  74. VINCRISTINE [Concomitant]
     Active Substance: VINCRISTINE
     Dates: start: 201501, end: 201708
  75. CISPLATIN [Concomitant]
     Active Substance: CISPLATIN
     Dates: start: 201501, end: 201708
  76. ADRIAMYCIN [Concomitant]
     Active Substance: DOXORUBICIN HYDROCHLORIDE
     Dates: start: 201501, end: 201708
  77. NAVELBINE [Concomitant]
     Active Substance: VINORELBINE TARTRATE
     Dates: start: 201501, end: 201708
  78. GEMCITABINE [Concomitant]
     Active Substance: GEMCITABINE
     Dates: start: 201501, end: 201508
  79. ZOMETA [Concomitant]
     Active Substance: ZOLEDRONIC ACID
     Dates: start: 201501, end: 201508
  80. TEMOZOLOMIDE [Concomitant]
     Active Substance: TEMOZOLOMIDE
     Dates: start: 201501, end: 201708
  81. PREDNISONE [Concomitant]
     Active Substance: PREDNISONE
     Route: 048
  82. PROPOFOL [Concomitant]
     Active Substance: PROPOFOL

REACTIONS (15)
  - Activated partial thromboplastin time prolonged [Unknown]
  - Anaemia [Unknown]
  - Pneumonitis [Unknown]
  - Urinary tract infection [Unknown]
  - Hypoxia [Unknown]
  - Pneumonia [Unknown]
  - Anxiety [Unknown]
  - Hypertension [Unknown]
  - Cerebrovascular accident [Recovered/Resolved]
  - Mental status changes [Recovered/Resolved]
  - Infection [Unknown]
  - Cerebrovascular accident [Recovered/Resolved]
  - Somnolence [Unknown]
  - Sepsis [Recovered/Resolved]
  - Infection [Unknown]

NARRATIVE: CASE EVENT DATE: 20171225
